FAERS Safety Report 17467047 (Version 1)
Quarter: 2020Q1

REPORT INFORMATION
  Report Type: Spontaneous
  Country: PT (occurrence: PT)
  Receive Date: 20200227
  Receipt Date: 20200227
  Transmission Date: 20200409
  Serious: Yes (Other)
  Sender: FDA-Public Use
  Company Number: PT-ROCHE-2554320

PATIENT
  Sex: Female

DRUGS (3)
  1. PACLITAXEL. [Concomitant]
     Active Substance: PACLITAXEL
     Route: 065
     Dates: start: 202001
  2. HERCEPTIN [Suspect]
     Active Substance: TRASTUZUMAB
     Indication: PRODUCT USED FOR UNKNOWN INDICATION
     Dosage: 1ST CYCLE
     Route: 065
     Dates: start: 202001, end: 202001
  3. PERTUZUMAB. [Concomitant]
     Active Substance: PERTUZUMAB
     Route: 065
     Dates: start: 202001

REACTIONS (3)
  - Chills [Recovered/Resolved]
  - Cough [Recovered/Resolved]
  - Tremor [Recovered/Resolved]

NARRATIVE: CASE EVENT DATE: 202001
